FAERS Safety Report 5839484-0 (Version None)
Quarter: 2008Q3

REPORT INFORMATION
  Report Type: 
  Country: None (occurrence: None)
  Receive Date: 20080807
  Receipt Date: 20080723
  Transmission Date: 20090109
  Serious: Yes (Death)
  Sender: FDA-Public Use
  Company Number: MK-6028964

PATIENT
  Age: 66 Year
  Sex: Male

DRUGS (26)
  1. ZOPICLONE (ZOPICLONE) [Suspect]
     Indication: DRUG USE FOR UNKNOWN INDICATION
     Dosage: 7.5 MG; DAILY;
     Dates: start: 20060619
  2. DIAZEPAM [Suspect]
     Indication: DRUG USE FOR UNKNOWN INDICATION
     Dosage: 4 MG; DAILY;
  3. OXYCONTIN [Suspect]
     Indication: DRUG USE FOR UNKNOWN INDICATION
     Dosage: 40 MG; TWICE A DAY; ORAL
     Route: 048
  4. OXYCODONE HCL [Suspect]
     Indication: CANCER PAIN
     Dosage: ; ORAL
     Route: 048
     Dates: start: 20060616
  5. ACETYLSALICYLIC ACID SRT [Concomitant]
  6. CAFFEINE CITRATE [Concomitant]
  7. CEFACLOR [Concomitant]
  8. DEXAMETHASONE TAB [Concomitant]
  9. DOCUSATE [Concomitant]
  10. FUROSEMIDE [Concomitant]
  11. HALOPERIDOL [Concomitant]
  12. IPRATROPIUM BROMIDE [Concomitant]
  13. NYSTATIN [Concomitant]
  14. OMEPRAZOLE [Concomitant]
  15. ACETAMINOPHEN [Concomitant]
  16. SALBUTAMOL [Concomitant]
  17. WARFARIN SODIUM [Concomitant]
  18. ZOPICLONE [Concomitant]
  19. CITALOPRAM HYDROBROMIDE [Concomitant]
  20. DOXYCYCLINE [Concomitant]
  21. FRUSEMIDE [Concomitant]
  22. LORAZEPAM [Concomitant]
  23. MIDAZOLAM HCL [Concomitant]
  24. NICOTINE [Concomitant]
  25. OXYGEN [Concomitant]
  26. SALAZOPYRIN [Concomitant]

REACTIONS (5)
  - CONFUSIONAL STATE [None]
  - DISEASE PROGRESSION [None]
  - HALLUCINATION [None]
  - INSOMNIA [None]
  - LOWER RESPIRATORY TRACT INFECTION [None]
